FAERS Safety Report 26024126 (Version 1)
Quarter: 2025Q4

REPORT INFORMATION
  Report Type: Spontaneous
  Country: CN (occurrence: CN)
  Receive Date: 20251111
  Receipt Date: 20251111
  Transmission Date: 20260118
  Serious: Yes (Life-Threatening, Hospitalization, Other)
  Sender: TAKEDA
  Company Number: CN-HUTCHMED LIMITED-HMP2025CN02795

PATIENT
  Age: 34 Year
  Sex: Female
  Weight: 40 kg

DRUGS (3)
  1. FRUQUINTINIB [Suspect]
     Active Substance: FRUQUINTINIB
     Indication: Colon cancer
     Dosage: 3 MILLIGRAM, QD
     Dates: start: 20251015, end: 20251015
  2. SINTILIMAB [Suspect]
     Active Substance: SINTILIMAB
     Indication: Colon cancer
     Dosage: 200 MILLIGRAM, QD
     Dates: start: 20251015, end: 20251015
  3. SODIUM CHLORIDE [Concomitant]
     Active Substance: SODIUM CHLORIDE
     Indication: Vehicle solution use
     Dosage: 100 MILLILITER, QD
     Dates: start: 20251015, end: 20251015

REACTIONS (2)
  - Immune-mediated encephalopathy [Recovering/Resolving]
  - Cortisol decreased [Unknown]

NARRATIVE: CASE EVENT DATE: 20251020
